FAERS Safety Report 15097933 (Version 3)
Quarter: 2018Q3

REPORT INFORMATION
  Report Type: Spontaneous
  Country: DE (occurrence: DE)
  Receive Date: 20180702
  Receipt Date: 20180824
  Transmission Date: 20181010
  Serious: Yes (Death, Disabling, Congenital Anomaly, Other)
  Sender: FDA-Public Use
  Company Number: PHHY2018DE028791

PATIENT
  Weight: .01 kg

DRUGS (7)
  1. DIGITOXIN [Suspect]
     Active Substance: DIGITOXIN
     Indication: FOETAL EXPOSURE DURING PREGNANCY
     Dosage: MATERNAL DOSE: UNKNOWN
     Route: 064
  2. DIGITOXIN [Suspect]
     Active Substance: DIGITOXIN
     Dosage: UNK
     Route: 064
  3. ACETAZOLAMIDE. [Suspect]
     Active Substance: ACETAZOLAMIDE
     Indication: FOETAL EXPOSURE DURING PREGNANCY
     Dosage: MATERNAL DOSE: UNKNOWN
     Route: 064
  4. NADOLOL. [Suspect]
     Active Substance: NADOLOL
     Indication: FOETAL EXPOSURE DURING PREGNANCY
     Dosage: MATERNAL DOSE: UNKNOWN
     Route: 064
  5. AMIODARONE [Suspect]
     Active Substance: AMIODARONE
     Indication: FOETAL EXPOSURE DURING PREGNANCY
     Dosage: MATERNAL DOSE: UNKNOWN
     Route: 064
  6. CAPTOPRIL. [Suspect]
     Active Substance: CAPTOPRIL
     Indication: FOETAL EXPOSURE DURING PREGNANCY
     Dosage: MATERNAL DOSE: 50 MG, UNK
     Route: 064
  7. CAPTOPRIL. [Suspect]
     Active Substance: CAPTOPRIL
     Dosage: 50 MG
     Route: 064

REACTIONS (5)
  - Foetal exposure during pregnancy [Fatal]
  - Premature baby [Unknown]
  - Death [Fatal]
  - Potter^s syndrome [Fatal]
  - Low birth weight baby [Unknown]
